FAERS Safety Report 5071875-0 (Version None)
Quarter: 2006Q3

REPORT INFORMATION
  Report Type: 
  Country: None (occurrence: None)
  Receive Date: 20060801
  Receipt Date: 20060714
  Transmission Date: 20061208
  Serious: Yes (Other)
  Sender: FDA-Public Use
  Company Number: US200607002486

PATIENT
  Age: 51 Year
  Sex: Female

DRUGS (2)
  1. HUMALOG LISPRO (HUMALOG LISPRO) PEN, DISPOSABLE [Suspect]
     Indication: DIABETES MELLITUS INSULIN-DEPENDENT
     Dosage: 100 UNITS THREE TO FOUR TIMES DAILY
     Dates: start: 20041201
  2. HUMALOG PEN [Concomitant]

REACTIONS (1)
  - CERVIX CARCINOMA [None]
